FAERS Safety Report 13055747 (Version 2)
Quarter: 2017Q1

REPORT INFORMATION
  Report Type: Spontaneous
  Country: US (occurrence: US)
  Receive Date: 20161222
  Receipt Date: 20170207
  Transmission Date: 20170428
  Serious: No
  Sender: FDA-Public Use
  Company Number: US-ELI_LILLY_AND_COMPANY-US201612000112

PATIENT
  Age: 24 Year
  Sex: Male

DRUGS (4)
  1. TALTZ [Suspect]
     Active Substance: IXEKIZUMAB
     Dosage: 80 MG, OTHER
     Route: 058
  2. VALTRAX [Concomitant]
     Dosage: 1000 MG, QD
     Route: 048
  3. XANAX [Concomitant]
     Active Substance: ALPRAZOLAM
     Dosage: 0.5 MG, PRN
     Route: 065
  4. TALTZ [Suspect]
     Active Substance: IXEKIZUMAB
     Indication: PSORIASIS
     Dosage: 80 MG, OTHER
     Route: 058
     Dates: start: 20160902

REACTIONS (5)
  - Cutaneous vasculitis [Recovered/Resolved]
  - Pharyngitis streptococcal [Recovered/Resolved]
  - Binge drinking [Recovered/Resolved]
  - Oedema peripheral [Recovered/Resolved]
  - Scrotal oedema [Recovered/Resolved]
